FAERS Safety Report 18125551 (Version 1)
Quarter: 2020Q3

REPORT INFORMATION
  Report Type: Spontaneous
  Country: US (occurrence: US)
  Receive Date: 20200807
  Receipt Date: 20200807
  Transmission Date: 20201103
  Serious: No
  Sender: FDA-Public Use
  Company Number: US-ROCHE-2552354

PATIENT
  Sex: Female
  Weight: 53.57 kg

DRUGS (2)
  1. KANJINTI [Concomitant]
     Active Substance: TRASTUZUMAB-ANNS
     Route: 042
     Dates: start: 20200212
  2. PERJETA [Suspect]
     Active Substance: PERTUZUMAB
     Indication: NEOPLASM MALIGNANT
     Route: 042
     Dates: start: 20190517

REACTIONS (2)
  - Blood potassium decreased [Unknown]
  - Diarrhoea [Unknown]
